FAERS Safety Report 4530177-9 (Version None)
Quarter: 2004Q4

REPORT INFORMATION
  Report Type: 
  Country: None (occurrence: None)
  Receive Date: 20041215
  Receipt Date: 20041215
  Transmission Date: 20050328
  Serious: No
  Sender: FDA-Public Use
  Company Number: None

PATIENT
  Age: 55 Year
  Sex: Male
  Weight: 74.8435 kg

DRUGS (2)
  1. CELEBREX [Suspect]
     Indication: ANTIINFLAMMATORY THERAPY
     Dosage: 1 DAY ORAL
     Route: 048
     Dates: start: 20041026, end: 20041204
  2. FLOMAX [Concomitant]

REACTIONS (3)
  - HYPERTENSION [None]
  - RASH [None]
  - TENDONITIS [None]
